FAERS Safety Report 23369650 (Version 2)
Quarter: 2024Q1

REPORT INFORMATION
  Report Type: Spontaneous
  Country: ES (occurrence: ES)
  Receive Date: 20240105
  Receipt Date: 20240319
  Transmission Date: 20240410
  Serious: Yes (Hospitalization, Other)
  Sender: FDA-Public Use
  Company Number: ES-JAZZ PHARMACEUTICALS-2023-ES-025488

PATIENT

DRUGS (3)
  1. SODIUM OXYBATE [Suspect]
     Active Substance: SODIUM OXYBATE
     Indication: Narcolepsy
     Dosage: 3.5 GRAM, BID
     Route: 048
     Dates: start: 201803, end: 202209
  2. SODIUM OXYBATE [Suspect]
     Active Substance: SODIUM OXYBATE
     Indication: Cataplexy
     Dosage: 30 GRAM, QD OR MORE
  3. SODIUM OXYBATE [Suspect]
     Active Substance: SODIUM OXYBATE
     Dosage: 20 GRAM (40 MILLILITER) IN 2 DAYS

REACTIONS (17)
  - Drug abuse [Unknown]
  - Craniocerebral injury [Unknown]
  - Mania [Recovered/Resolved]
  - Fall [Unknown]
  - Delusion [Recovered/Resolved]
  - Restlessness [Recovered/Resolved]
  - Tachyphrenia [Recovered/Resolved]
  - Abnormal behaviour [Recovered/Resolved]
  - Delusion of grandeur [Recovered/Resolved]
  - Cyclothymic disorder [Unknown]
  - Euphoric mood [Recovered/Resolved]
  - Drug abuse [Unknown]
  - Drug abuse [Unknown]
  - Off label use [Unknown]
  - Psychomotor hyperactivity [Unknown]
  - Alcohol abuse [Unknown]
  - Adjustment disorder [Unknown]
